FAERS Safety Report 9719272 (Version 1)
Quarter: 2013Q4

REPORT INFORMATION
  Report Type: Spontaneous
  Country: DE (occurrence: DE)
  Receive Date: 20131127
  Receipt Date: 20131127
  Transmission Date: 20140711
  Serious: Yes (Hospitalization)
  Sender: FDA-Public Use
  Company Number: DE-AMGEN-DEUSP2013083519

PATIENT
  Sex: Male

DRUGS (18)
  1. PEGFILGRASTIM [Suspect]
     Indication: B-CELL LYMPHOMA
     Dosage: 6 MG, 1 IN 1 D
     Route: 058
     Dates: start: 20131117, end: 20131117
  2. RITUXIMAB [Suspect]
     Indication: B-CELL LYMPHOMA
     Dosage: 802.5 MG, 1 IN 1 D
     Route: 042
     Dates: start: 20131015, end: 20131015
  3. RITUXIMAB [Suspect]
     Dosage: 788 MG, UNK
     Route: 042
     Dates: start: 20131113, end: 20131113
  4. CYCLOPHOSPHAMIDE [Concomitant]
     Indication: B-CELL LYMPHOMA
     Dosage: 1605 MG, 1 IN 1 D
     Route: 042
     Dates: start: 20131017, end: 20131017
  5. CYCLOPHOSPHAMIDE [Concomitant]
     Dosage: 1575 MG, UNK
     Route: 042
     Dates: start: 20131114
  6. DOXORUBICINE                       /00330901/ [Concomitant]
     Indication: B-CELL LYMPHOMA
     Dosage: 107 MG, 1 IN 1 D
     Route: 042
     Dates: start: 20131017, end: 20131017
  7. DOXORUBICINE                       /00330901/ [Concomitant]
     Dosage: 105 MG, UNK
     Route: 042
     Dates: start: 20131114, end: 20131114
  8. VINCRISTINE [Concomitant]
     Indication: B-CELL LYMPHOMA
     Dosage: 2 MG, 1 IN 1 D
     Route: 042
     Dates: start: 20131017, end: 20131017
  9. VINCRISTINE [Concomitant]
     Dosage: 2 MG, UNK
     Route: 042
     Dates: start: 20131114, end: 20131114
  10. PREDNISOLONE [Concomitant]
     Indication: B-CELL LYMPHOMA
     Dosage: 100 MG, FOR 5 DAYS
     Route: 042
     Dates: start: 20131017, end: 20131017
  11. PREDNISOLONE [Concomitant]
     Dosage: 100 MG, FOR 5 DAYS
     Route: 048
     Dates: start: 20131114, end: 20131118
  12. RAMIPRIL [Concomitant]
     Indication: HYPERTENSION
     Dosage: 10 MG, 1 IN 1 D
     Route: 048
  13. SIMVASTATIN [Concomitant]
     Indication: HYPERLIPIDAEMIA
     Dosage: 40 MG, 1 IN 1 D
     Route: 048
  14. RIVAROXABAN [Concomitant]
     Indication: ATRIAL FIBRILLATION
     Dosage: 20 MG, 1 IN 1 D
     Route: 048
  15. AMLODIPINE MESILATE [Concomitant]
     Indication: ANGINA PECTORIS
     Dosage: 5 MG, 1 IN 1 D
     Route: 048
  16. ALLOPURINOL [Concomitant]
     Indication: HYPERURICAEMIA
     Dosage: 100 MG, 1 IN 1 D
     Route: 048
  17. ACICLOVIR [Concomitant]
     Indication: PROPHYLAXIS
     Dosage: 400 MG, 2 IN 1 D
     Route: 048
  18. METOPROLOL SUCCINATE [Concomitant]
     Indication: ARRHYTHMIA
     Dosage: 95 MG, BID
     Route: 048

REACTIONS (3)
  - Hypertension [Recovered/Resolved]
  - Atrial tachycardia [Recovered/Resolved]
  - Cardiac disorder [Recovered/Resolved]
